FAERS Safety Report 10259195 (Version 1)
Quarter: 2014Q2

REPORT INFORMATION
  Report Type: Spontaneous
  Country: DE (occurrence: DE)
  Receive Date: 20140625
  Receipt Date: 20140625
  Transmission Date: 20141212
  Serious: Yes (Other)
  Sender: FDA-Public Use
  Company Number: DE-ASTRAZENECA-2014SE44744

PATIENT
  Sex: Male
  Weight: 91 kg

DRUGS (8)
  1. CRESTOR [Suspect]
     Indication: ARTERIOSCLEROSIS
     Route: 048
     Dates: start: 2010
  2. EDARBI [Suspect]
     Indication: HYPERTENSION
     Route: 048
     Dates: start: 2011
  3. JANUMET [Suspect]
     Indication: TYPE 2 DIABETES MELLITUS
     Dosage: 50/850 2X1
     Route: 048
  4. BISOPROLOL [Concomitant]
     Indication: ARRHYTHMIA
     Route: 048
     Dates: start: 2011
  5. AMLODIPIN [Concomitant]
     Indication: HYPERTENSION
     Route: 048
     Dates: start: 2010
  6. HCT [Concomitant]
     Route: 048
  7. ASS [Concomitant]
     Route: 048
  8. PACLITAXEL BALLONKATHETER [Concomitant]
     Dates: start: 2013

REACTIONS (3)
  - Hyperadrenalism [Unknown]
  - Hypotonia [Unknown]
  - Musculoskeletal discomfort [Unknown]
